FAERS Safety Report 20456252 (Version 1)
Quarter: 2022Q1

REPORT INFORMATION
  Report Type: Spontaneous
  Country: US (occurrence: None)
  Receive Date: 20220210
  Receipt Date: 20220210
  Transmission Date: 20220423
  Serious: Yes (Hospitalization)
  Sender: FDA-Public Use
  Company Number: None

PATIENT
  Sex: Female

DRUGS (1)
  1. HUMIRA [Suspect]
     Active Substance: ADALIMUMAB
     Indication: Crohn^s disease
     Dosage: OTHER QUANTITY : 40 MG/0.4 ML;?OTHER FREQUENCY : NJECT 1 PEN UNDER THE SKIN (SUBCUTANEOUS INJECTION)
     Route: 058
     Dates: start: 20210923

REACTIONS (1)
  - Condition aggravated [None]
